FAERS Safety Report 9483682 (Version 1)
Quarter: 2013Q3

REPORT INFORMATION
  Report Type: Spontaneous
  Country: CA (occurrence: CA)
  Receive Date: 20130828
  Receipt Date: 20130828
  Transmission Date: 20140515
  Serious: Yes (Death, Hospitalization, Other)
  Sender: FDA-Public Use
  Company Number: CA-AMGEN-KDL308107

PATIENT
  Age: 65 Year
  Sex: Female

DRUGS (1)
  1. ENBREL [Suspect]
     Indication: RHEUMATOID ARTHRITIS
     Dosage: UNK UNK, QWK
     Route: 058
     Dates: start: 20040609, end: 200709

REACTIONS (8)
  - Tongue neoplasm malignant stage unspecified [Fatal]
  - Cerebrovascular accident [Unknown]
  - Tongue cancer metastatic [Unknown]
  - Hip fracture [Unknown]
  - Metastatic neoplasm [Unknown]
  - Death [Fatal]
  - Fall [Unknown]
  - Asthenia [Unknown]
